FAERS Safety Report 14360768 (Version 1)
Quarter: 2018Q1

REPORT INFORMATION
  Report Type: Spontaneous
  Country: FR (occurrence: FR)
  Receive Date: 20180107
  Receipt Date: 20180107
  Transmission Date: 20180509
  Serious: Yes (Hospitalization)
  Sender: FDA-Public Use
  Company Number: FR-TEVA-2017-FR-840757

PATIENT
  Age: 42 Year
  Sex: Male

DRUGS (1)
  1. COPAXONE [Suspect]
     Active Substance: GLATIRAMER ACETATE
     Route: 065
     Dates: start: 20171201, end: 20171211

REACTIONS (1)
  - Gait inability [Recovered/Resolved]

NARRATIVE: CASE EVENT DATE: 20171211
